FAERS Safety Report 6569779-7 (Version None)
Quarter: 2010Q1

REPORT INFORMATION
  Report Type: 
  Country: None (occurrence: None)
  Receive Date: 20100204
  Receipt Date: 20100125
  Transmission Date: 20100710
  Serious: Yes (Other)
  Sender: FDA-Public Use
  Company Number: US-ELI_LILLY_AND_COMPANY-US201001005126

PATIENT
  Sex: Female
  Weight: 92.971 kg

DRUGS (6)
  1. BYETTA [Suspect]
     Indication: GLUCOSE TOLERANCE IMPAIRED
     Dosage: 5 UG, DAILY (1/D)
     Dates: start: 20060401
  2. BYETTA [Suspect]
     Dosage: 10 UG, DAILY (1/D)
     Dates: end: 20090901
  3. BYETTA [Suspect]
     Dosage: 5 UG, DAILY (1/D)
     Dates: start: 20090901, end: 20091218
  4. METFORMIN HCL [Concomitant]
     Indication: GLUCOSE TOLERANCE IMPAIRED
     Dosage: 2500 MG, DAILY (1/D)
     Route: 048
     Dates: start: 20060401
  5. ZESTRIL [Concomitant]
     Indication: BLOOD PRESSURE
     Dosage: 5 MG, DAILY (1/D)
     Dates: start: 20060401
  6. SIMVASTATIN [Concomitant]
     Indication: BLOOD CHOLESTEROL
     Dosage: 40 MG, DAILY (1/D)
     Dates: start: 20090801

REACTIONS (9)
  - ABDOMINAL PAIN [None]
  - ABDOMINAL PAIN UPPER [None]
  - BLOOD AMYLASE INCREASED [None]
  - LIPASE INCREASED [None]
  - LIVER DISORDER [None]
  - NAUSEA [None]
  - OFF LABEL USE [None]
  - PANCREATITIS [None]
  - VOMITING [None]
